FAERS Safety Report 13624830 (Version 1)
Quarter: 2017Q2

REPORT INFORMATION
  Report Type: Spontaneous
  Country: BR (occurrence: BR)
  Receive Date: 20170607
  Receipt Date: 20170607
  Transmission Date: 20170830
  Serious: Yes (Hospitalization, Other)
  Sender: FDA-Public Use
  Company Number: BR-ABBVIE-17P-020-1999719-00

PATIENT
  Sex: Female

DRUGS (5)
  1. T3 [Concomitant]
     Active Substance: LIOTHYRONINE SODIUM
     Indication: HYPOTHYROIDISM
     Route: 048
  2. SYNTHROID [Suspect]
     Active Substance: LEVOTHYROXINE SODIUM
     Dosage: INTERCALATE WITH SYNTHROID 88 MCG
     Route: 048
  3. CALCIUM [Concomitant]
     Active Substance: CALCIUM
     Indication: PRODUCT USED FOR UNKNOWN INDICATION
  4. SYNTHROID [Suspect]
     Active Substance: LEVOTHYROXINE SODIUM
     Indication: HYPOTHYROIDISM
     Dosage: INTERCALATE WITH SYNTHROID 100 MCG
     Route: 048
  5. BETASERC [Suspect]
     Active Substance: BETAHISTINE
     Indication: LABYRINTHITIS
     Route: 048

REACTIONS (17)
  - Headache [Not Recovered/Not Resolved]
  - Myalgia [Unknown]
  - Arthralgia [Unknown]
  - Blindness [Unknown]
  - Pancreatic cyst [Unknown]
  - Hypotension [Unknown]
  - Pancreatitis [Unknown]
  - Dizziness [Recovering/Resolving]
  - Abdominal pain upper [Unknown]
  - Stress [Unknown]
  - Anaemia [Unknown]
  - Spinal pain [Unknown]
  - Haemoglobin decreased [Not Recovered/Not Resolved]
  - Meningioma [Not Recovered/Not Resolved]
  - Optic atrophy [Unknown]
  - Hypertension [Unknown]
  - Malaise [Unknown]

NARRATIVE: CASE EVENT DATE: 201509
